FAERS Safety Report 20024216 (Version 1)
Quarter: 2021Q4

REPORT INFORMATION
  Report Type: Spontaneous
  Country: DE (occurrence: DE)
  Receive Date: 20211102
  Receipt Date: 20211102
  Transmission Date: 20220303
  Serious: Yes (Hospitalization)
  Sender: FDA-Public Use
  Company Number: DE-ADRED-06951-01

PATIENT
  Age: 85 Year
  Sex: Female
  Weight: 74 kg

DRUGS (4)
  1. ATENOLOL [Suspect]
     Active Substance: ATENOLOL
     Indication: Product used for unknown indication
     Dosage: 25 MILLIGRAM, QD (50 MG, 0.5-0-0-0, TABLET)
     Route: 048
  2. POTASSIUM IODIDE [Concomitant]
     Active Substance: POTASSIUM IODIDE
     Dosage: 262 MICROGRAM, QD, 262 MCG, 1-0-0-0, TABLET
     Route: 048
  3. ASPIRIN [Concomitant]
     Active Substance: ASPIRIN
     Dosage: 100 MILLIGRAM, QD, 100 MG, 0-1-0-0, TABLET
     Route: 048
  4. TRAMADOL [Concomitant]
     Active Substance: TRAMADOL
     Dosage: 50 MILLIGRAM, BID, 50 MG, 1-0-1-0, TABLET
     Route: 048

REACTIONS (2)
  - Oedema peripheral [Unknown]
  - Pain [Unknown]
